FAERS Safety Report 21436455 (Version 2)
Quarter: 2022Q4

REPORT INFORMATION
  Report Type: Report from Study
  Country: FR (occurrence: FR)
  Receive Date: 20221010
  Receipt Date: 20221014
  Transmission Date: 20230113
  Serious: Yes (Death, Other)
  Sender: FDA-Public Use
  Company Number: FR-NOVARTISPH-NVSC2022FR227394

PATIENT
  Age: 54 Year
  Weight: 88 kg

DRUGS (2)
  1. PLUVICTO [Suspect]
     Active Substance: LUTETIUM LU-177 VIPIVOTIDE TETRAXETAN
     Indication: Prostate cancer
     Dosage: 7262 MBQ, ONCE/SINGLE (SLOW INTRAVENOUS INJECTION)
     Route: 042
     Dates: start: 20220414, end: 20220414
  2. PLUVICTO [Suspect]
     Active Substance: LUTETIUM LU-177 VIPIVOTIDE TETRAXETAN
     Dosage: 7246 MBQ, ONCE/SINGLE (SLOW INTRAVENOUS INJECTION)
     Route: 042
     Dates: start: 20220616, end: 20220616

REACTIONS (8)
  - Disseminated intravascular coagulation [Fatal]
  - Thrombocytopenia [Fatal]
  - Neutropenia [Not Recovered/Not Resolved]
  - Prostate cancer [Not Recovered/Not Resolved]
  - Malignant neoplasm progression [Not Recovered/Not Resolved]
  - Leukopenia [Unknown]
  - Anaemia [Unknown]
  - Dyspnoea [Unknown]

NARRATIVE: CASE EVENT DATE: 20220706
